FAERS Safety Report 8634607 (Version 3)
Quarter: 2013Q3

REPORT INFORMATION
  Report Type: Spontaneous
  Country: US (occurrence: US)
  Receive Date: 20120626
  Receipt Date: 20130722
  Transmission Date: 20140515
  Serious: Yes (Hospitalization)
  Sender: FDA-Public Use
  Company Number: US-BAYER-2012-061156

PATIENT
  Age: 51 Year
  Sex: Female

DRUGS (8)
  1. YASMIN [Suspect]
     Indication: MENOPAUSAL SYMPTOMS
     Dosage: UNK
     Dates: start: 2005, end: 2006
  2. YASMIN [Suspect]
     Indication: MENSTRUATION IRREGULAR
  3. YASMIN [Suspect]
     Indication: ACNE
  4. WELLBUTRIN [Concomitant]
     Indication: DEPRESSION
     Dosage: 150 MG, BID
  5. ASPIRIN [Concomitant]
  6. LISINOPRIL [Concomitant]
     Dosage: 5.5 MG, UNK
  7. IBUPROFEN [Concomitant]
     Indication: FIBROMYALGIA
  8. IBUPROFEN [Concomitant]
     Indication: OSTEOARTHRITIS

REACTIONS (13)
  - Brain stem stroke [None]
  - Pain [None]
  - Hypoaesthesia [None]
  - Hypoaesthesia oral [None]
  - Paraesthesia [None]
  - Paraesthesia oral [None]
  - Peroneal nerve palsy [None]
  - Gait disturbance [None]
  - Hemiparesis [None]
  - Dysgraphia [None]
  - Pain [None]
  - Off label use [None]
  - Fatigue [None]
